FAERS Safety Report 20045877 (Version 1)
Quarter: 2021Q4

REPORT INFORMATION
  Report Type: Spontaneous
  Country: IT (occurrence: IT)
  Receive Date: 20211108
  Receipt Date: 20211108
  Transmission Date: 20220303
  Serious: Yes (Other)
  Sender: FDA-Public Use
  Company Number: IT-CELLTRION INC.-2021IT014877

PATIENT

DRUGS (1)
  1. INFLIXIMAB [Suspect]
     Active Substance: INFLIXIMAB
     Indication: Ankylosing spondylitis
     Dosage: 3 MG/KG, ONCE/SINGLE
     Route: 041

REACTIONS (3)
  - Urachal abscess [Recovered/Resolved]
  - Sepsis [Recovered/Resolved]
  - Underdose [Unknown]
